FAERS Safety Report 11901065 (Version 1)
Quarter: 2016Q1

REPORT INFORMATION
  Report Type: Report from Study
  Country: US (occurrence: US)
  Receive Date: 20160108
  Receipt Date: 20160108
  Transmission Date: 20160526
  Serious: No
  Sender: FDA-Public Use
  Company Number: US-ABBVIE-15P-163-1516293-00

PATIENT
  Age: 50 Year
  Sex: Male

DRUGS (3)
  1. VIEKIRA PAK [Suspect]
     Active Substance: DASABUVIR\OMBITASVIR\PARITAPREVIR\RITONAVIR
     Indication: CHRONIC HEPATITIS C
     Route: 048
     Dates: start: 20150828
  2. RIBAVIRIN. [Suspect]
     Active Substance: RIBAVIRIN
     Route: 048
     Dates: start: 20150908
  3. RIBAVIRIN. [Suspect]
     Active Substance: RIBAVIRIN
     Indication: CHRONIC HEPATITIS C
     Route: 048
     Dates: start: 20150813, end: 20150907

REACTIONS (21)
  - Decreased appetite [Unknown]
  - Rhinorrhoea [Unknown]
  - Dizziness [Unknown]
  - Urinary tract infection [Unknown]
  - Haematemesis [Unknown]
  - Pollakiuria [Unknown]
  - Fatigue [Unknown]
  - Joint injury [Unknown]
  - Dehydration [Unknown]
  - Leukopenia [Unknown]
  - Dysuria [Unknown]
  - Malaise [Unknown]
  - Fall [Unknown]
  - Cough [Unknown]
  - Anaemia [Unknown]
  - Asthenia [Unknown]
  - Contusion [Unknown]
  - Headache [Unknown]
  - Faeces discoloured [Unknown]
  - Back pain [Unknown]
  - Fungal infection [Unknown]
